FAERS Safety Report 14331133 (Version 1)
Quarter: 2017Q4

REPORT INFORMATION
  Report Type: Spontaneous
  Country: US (occurrence: US)
  Receive Date: 20171228
  Receipt Date: 20171228
  Transmission Date: 20180321
  Serious: Yes (Other)
  Sender: FDA-Public Use
  Company Number: US-ROCHE-2046793

PATIENT
  Sex: Female

DRUGS (2)
  1. NUTROPIN AQ [Suspect]
     Active Substance: SOMATROPIN
     Indication: HYPOPITUITARISM
     Dosage: 5MG/2ML.
     Route: 058
     Dates: start: 20140312
  2. NUTROPIN AQ [Suspect]
     Active Substance: SOMATROPIN
     Dosage: 5MG/2ML.
     Route: 058

REACTIONS (2)
  - Blood growth hormone increased [Unknown]
  - Arthralgia [Unknown]
